FAERS Safety Report 10692408 (Version 1)
Quarter: 2015Q1

REPORT INFORMATION
  Report Type: Spontaneous
  Country: IT (occurrence: IT)
  Receive Date: 20150106
  Receipt Date: 20150106
  Transmission Date: 20150720
  Serious: Yes (Other)
  Sender: FDA-Public Use
  Company Number: IT-ELI_LILLY_AND_COMPANY-IT201412009021

PATIENT
  Age: 37 Year
  Sex: Female

DRUGS (4)
  1. ZYPADHERA [Suspect]
     Active Substance: OLANZAPINE PAMOATE
     Indication: SCHIZOAFFECTIVE DISORDER
     Dosage: 405MG, Q 2 WEEKS
     Route: 030
     Dates: start: 2011
  2. DEPAKENE [Concomitant]
     Active Substance: VALPROIC ACID
     Dosage: 500MG, UNK
  3. ENTUMIN [Concomitant]
     Active Substance: CLOTHIAPINE
     Dosage: UNK, PRN
  4. ZYPADHERA [Suspect]
     Active Substance: OLANZAPINE PAMOATE
     Dosage: 405MG, EVERY THREE WEEKS

REACTIONS (11)
  - Gait disturbance [Recovering/Resolving]
  - Dizziness [Recovered/Resolved]
  - Aphasia [Recovering/Resolving]
  - Dysphagia [Recovering/Resolving]
  - Dry mouth [Recovering/Resolving]
  - Limb discomfort [Recovering/Resolving]
  - Muscle rigidity [Recovering/Resolving]
  - Prescribed overdose [Recovering/Resolving]
  - Headache [Recovering/Resolving]
  - Sedation [Recovering/Resolving]
  - Epiglottic oedema [Recovering/Resolving]

NARRATIVE: CASE EVENT DATE: 20141224
